FAERS Safety Report 10985112 (Version 1)
Quarter: 2015Q2

REPORT INFORMATION
  Report Type: Spontaneous
  Country: US (occurrence: None)
  Receive Date: 20150402
  Receipt Date: 20150402
  Transmission Date: 20150821
  Serious: Yes (Hospitalization)
  Sender: FDA-Public Use
  Company Number: NY150110

PATIENT
  Sex: Female

DRUGS (2)
  1. POVIDONE-IODINE SWABSTICK [Suspect]
     Active Substance: POVIDONE-IODINE
     Indication: PREOPERATIVE CARE
     Route: 061
     Dates: start: 20150306
  2. POVIDONE-IODINE SWABSTICK [Suspect]
     Active Substance: POVIDONE-IODINE
     Route: 061
     Dates: start: 20150306

REACTIONS (3)
  - Anaphylactic reaction [None]
  - Swollen tongue [None]
  - Hypersensitivity [None]

NARRATIVE: CASE EVENT DATE: 20150306
